FAERS Safety Report 6458748-3 (Version None)
Quarter: 2009Q4

REPORT INFORMATION
  Report Type: 
  Country: None (occurrence: None)
  Receive Date: 20091127
  Receipt Date: 20091118
  Transmission Date: 20100525
  Serious: Yes (Other)
  Sender: FDA-Public Use
  Company Number: GB-ROCHE-669787

PATIENT
  Age: 47 Year
  Sex: Male

DRUGS (6)
  1. TAMIFLU [Suspect]
     Indication: DRUG USE FOR UNKNOWN INDICATION
     Route: 065
     Dates: start: 20091001
  2. RAMIPRIL [Concomitant]
  3. BENDROFLUMETHIAZIDE [Concomitant]
  4. ATORVASTATIN [Concomitant]
  5. ATENOLOL [Concomitant]
  6. DOXAZOSIN [Concomitant]

REACTIONS (1)
  - ANOSMIA [None]
